FAERS Safety Report 17247737 (Version 1)
Quarter: 2020Q1

REPORT INFORMATION
  Report Type: Spontaneous
  Country: US (occurrence: US)
  Receive Date: 20200107
  Receipt Date: 20200107
  Transmission Date: 20200409
  Serious: No
  Sender: FDA-Public Use
  Company Number: None

PATIENT
  Age: 63 Year
  Sex: Female
  Weight: 67.5 kg

DRUGS (5)
  1. COQ10 [Concomitant]
     Active Substance: UBIDECARENONE
  2. IRBSAR/HCTZ [Concomitant]
  3. CHOLESLO (DIETARY SUPPLEMENT) [Suspect]
     Active Substance: DIETARY SUPPLEMENT
     Indication: HYPERLIPIDAEMIA
     Dosage: ?          QUANTITY:2 CAPSULE(S);?
     Route: 048
     Dates: start: 20200107, end: 20200107
  4. FISH OIL [Concomitant]
     Active Substance: FISH OIL
  5. MAGNESIUM GLYCINATE [Concomitant]
     Active Substance: MAGNESIUM GLYCINATE

REACTIONS (3)
  - Headache [None]
  - Reaction to excipient [None]
  - Mycotic allergy [None]

NARRATIVE: CASE EVENT DATE: 20200107
